FAERS Safety Report 12575920 (Version 3)
Quarter: 2016Q3

REPORT INFORMATION
  Report Type: Spontaneous
  Country: IT (occurrence: IT)
  Receive Date: 20160720
  Receipt Date: 20160811
  Transmission Date: 20161109
  Serious: Yes (Other)
  Sender: FDA-Public Use
  Company Number: PHHY2016IT097050

PATIENT
  Age: 57 Year
  Sex: Male

DRUGS (9)
  1. TIGECICLINA [Suspect]
     Active Substance: TIGECYCLINE
     Indication: MENINGITIS BACTERIAL
     Dosage: 200 MG, QD
     Route: 058
     Dates: start: 20160504, end: 20160523
  2. TIGECICLINA [Suspect]
     Active Substance: TIGECYCLINE
     Indication: BRAIN ABSCESS
  3. LINEZOLID. [Suspect]
     Active Substance: LINEZOLID
     Indication: MENINGITIS BACTERIAL
     Dosage: 1200 MG, QD
     Route: 048
     Dates: start: 20160504, end: 20160523
  4. LINEZOLID. [Suspect]
     Active Substance: LINEZOLID
     Indication: BRAIN ABSCESS
  5. TRIMETOPRIM SULFAMETOXAZOL [Suspect]
     Active Substance: SULFAMETHOXAZOLE\TRIMETHOPRIM
     Indication: BRAIN ABSCESS
  6. TRIMETOPRIM SULFAMETOXAZOL [Suspect]
     Active Substance: SULFAMETHOXAZOLE\TRIMETHOPRIM
     Indication: MENINGITIS BACTERIAL
     Route: 048
     Dates: start: 20160523, end: 20160602
  7. LINEZOLID. [Suspect]
     Active Substance: LINEZOLID
     Indication: ENCEPHALITIS
  8. TRIMETOPRIM SULFAMETOXAZOL [Suspect]
     Active Substance: SULFAMETHOXAZOLE\TRIMETHOPRIM
     Indication: ENCEPHALITIS
  9. TIGECICLINA [Suspect]
     Active Substance: TIGECYCLINE
     Indication: ENCEPHALITIS

REACTIONS (3)
  - Thrombocytopenia [Recovered/Resolved]
  - Rash erythematous [Recovered/Resolved]
  - Blood fibrinogen decreased [Recovered/Resolved]

NARRATIVE: CASE EVENT DATE: 20160601
